FAERS Safety Report 5498299-6 (Version None)
Quarter: 2007Q4

REPORT INFORMATION
  Report Type: 
  Country: None (occurrence: None)
  Receive Date: 20071025
  Receipt Date: 20070629
  Transmission Date: 20080405
  Serious: No
  Sender: FDA-Public Use
  Company Number: A0648939A

PATIENT
  Sex: Female

DRUGS (5)
  1. ADVAIR DISKUS 100/50 [Suspect]
     Indication: DRUG USE FOR UNKNOWN INDICATION
     Dosage: 1PUFF IN THE MORNING
     Route: 055
  2. SYNTHROID [Concomitant]
     Dosage: 75MCG PER DAY
     Route: 048
  3. ALBUTEROL [Concomitant]
     Dosage: 1PUFF AS REQUIRED
     Route: 055
  4. BENADRYL [Concomitant]
     Indication: SLEEP DISORDER
  5. ALEVE [Concomitant]

REACTIONS (8)
  - ADVERSE EVENT [None]
  - BLOOD PRESSURE SYSTOLIC INCREASED [None]
  - CHEST PAIN [None]
  - DIZZINESS [None]
  - DYSGEUSIA [None]
  - HEADACHE [None]
  - PHARMACEUTICAL PRODUCT COMPLAINT [None]
  - SOMNOLENCE [None]
